FAERS Safety Report 12459606 (Version 1)
Quarter: 2016Q2

REPORT INFORMATION
  Report Type: Spontaneous
  Country: US (occurrence: US)
  Receive Date: 20160613
  Receipt Date: 20160613
  Transmission Date: 20160815
  Serious: Yes (Hospitalization)
  Sender: FDA-Public Use
  Company Number: US-ACTAVIS-2016-12036

PATIENT
  Age: 38 Year
  Sex: Female

DRUGS (1)
  1. ZOLPIDEM TARTRATE (WATSON LABORATORIES) [Suspect]
     Active Substance: ZOLPIDEM TARTRATE
     Indication: PRODUCT USED FOR UNKNOWN INDICATION
     Dosage: 50 MG, QPM
     Route: 065

REACTIONS (4)
  - Seizure [Recovered/Resolved]
  - Intentional product misuse [Unknown]
  - Withdrawal syndrome [Unknown]
  - Drug dependence [Unknown]
